FAERS Safety Report 10250370 (Version 1)
Quarter: 2014Q2

REPORT INFORMATION
  Report Type: Spontaneous
  Country: US (occurrence: None)
  Receive Date: 20140618
  Receipt Date: 20140618
  Transmission Date: 20141212
  Serious: No
  Sender: FDA-Public Use
  Company Number: None

PATIENT
  Age: 42 Year
  Sex: Male
  Weight: 90.72 kg

DRUGS (2)
  1. TORADOL [Suspect]
     Indication: GOUT
     Dosage: ONE DAY, 4, ONCE DAILY, RECTAL
     Route: 054
  2. TORADOL [Suspect]
     Indication: PAIN IN EXTREMITY
     Dosage: ONE DAY, 4, ONCE DAILY, RECTAL
     Route: 054

REACTIONS (5)
  - Blood pressure increased [None]
  - Blood urine present [None]
  - Pyrexia [None]
  - Paraesthesia [None]
  - Peripheral coldness [None]
